FAERS Safety Report 6329781-7 (Version None)
Quarter: 2009Q3

REPORT INFORMATION
  Report Type: 
  Country: None (occurrence: None)
  Receive Date: 20090826
  Receipt Date: 20090819
  Transmission Date: 20100115
  Serious: Yes (Hospitalization, Other)
  Sender: FDA-Public Use
  Company Number: PHHO2009DE09161

PATIENT
  Sex: Female
  Weight: 77 kg

DRUGS (6)
  1. ZOLEDRONATE T29581+SOLINJ+BM [Suspect]
     Indication: BREAST CANCER
     Dosage: 4 MG, UNK
     Route: 042
     Dates: start: 20070823
  2. HERCEPTIN [Concomitant]
     Indication: BREAST CANCER
     Dosage: 490 MG, UNK
     Route: 042
     Dates: start: 20071016, end: 20080903
  3. VITAMIN D [Concomitant]
  4. CALCIUM [Concomitant]
  5. THYRONAJOD [Concomitant]
  6. OSSOFORTIN [Concomitant]

REACTIONS (3)
  - INFLAMMATION [None]
  - JAW OPERATION [None]
  - OSTEONECROSIS [None]
